FAERS Safety Report 4787583-7 (Version None)
Quarter: 2005Q4

REPORT INFORMATION
  Report Type: 
  Country: None (occurrence: None)
  Receive Date: 20051003
  Receipt Date: 20050921
  Transmission Date: 20060501
  Serious: Yes (Hospitalization)
  Sender: FDA-Public Use
  Company Number: 2005132425

PATIENT
  Age: 67 Year
  Sex: Female

DRUGS (6)
  1. XANAX [Suspect]
     Indication: ILL-DEFINED DISORDER
     Dosage: 0.5 MG (0.5 MG, 1 IN 1 D), ORAL
     Route: 048
     Dates: start: 20010101
  2. ALDALIX (SPIRONOLACTONE, FUROSEMIDE) [Suspect]
     Indication: ILL-DEFINED DISORDER
     Dosage: 50 MG (50 MG, 1 IN 1 D), ORAL
     Route: 048
     Dates: start: 20010101
  3. PREVISCAN (FLUINDIONE) [Suspect]
     Indication: ILL-DEFINED DISORDER
     Dosage: 0.5 DF (DAILY), ORAL
     Route: 048
     Dates: start: 20010101
  4. SPASFON (PHLOROGLUCINOL, TRIMETHYLPHOLOROGLUCINOL) [Suspect]
     Indication: ILL-DEFINED DISORDER
     Dosage: ORAL
     Route: 048
     Dates: start: 20010101
  5. PROPRANOLOL [Suspect]
     Indication: ILL-DEFINED DISORDER
     Dosage: 160 MG (160 MG, 1 IN 1 D), ORAL
     Route: 048
     Dates: start: 20010101
  6. DAFLON (DIOSMIN) [Suspect]
     Indication: ILL-DEFINED DISORDER
     Dosage: 1 DF (DAILY), ORAL
     Route: 048
     Dates: start: 20010101

REACTIONS (8)
  - CARDIOLIPIN ANTIBODY POSITIVE [None]
  - CUTANEOUS VASCULITIS [None]
  - CYTOMEGALOVIRUS ANTIBODY POSITIVE [None]
  - DYSGLOBULINAEMIA [None]
  - INFLAMMATION [None]
  - INTERSTITIAL LUNG DISEASE [None]
  - RENAL IMPAIRMENT [None]
  - VASCULAR PURPURA [None]
